FAERS Safety Report 5575023-X (Version None)
Quarter: 2007Q4

REPORT INFORMATION
  Report Type: 
  Country: None (occurrence: None)
  Receive Date: 20071227
  Receipt Date: 20071212
  Transmission Date: 20080405
  Serious: Yes (Hospitalization)
  Sender: FDA-Public Use
  Company Number: JP-GENENTECH-249474

PATIENT
  Sex: Female

DRUGS (2)
  1. HERCEPTIN [Suspect]
     Indication: BREAST CANCER METASTATIC
     Dosage: 240 MG, QD
     Route: 042
     Dates: start: 20041022
  2. XELODA [Suspect]
     Indication: BREAST CANCER METASTATIC
     Dosage: 1200 MG, BID
     Route: 048
     Dates: start: 20051007

REACTIONS (2)
  - HYPOAESTHESIA [None]
  - INTERSTITIAL LUNG DISEASE [None]
